FAERS Safety Report 19265191 (Version 2)
Quarter: 2021Q3

REPORT INFORMATION
  Report Type: Spontaneous
  Country: US (occurrence: US)
  Receive Date: 20210517
  Receipt Date: 20210805
  Transmission Date: 20211014
  Serious: Yes (Life-Threatening, Hospitalization, Other)
  Sender: FDA-Public Use
  Company Number: US-PFIZER INC-2021489788

PATIENT
  Age: 62 Year
  Sex: Male

DRUGS (7)
  1. BACLOFEN. [Concomitant]
     Active Substance: BACLOFEN
     Dosage: HAD BEEN ON FOR SEVERAL YEARS
  2. VANCOMYCIN HCL [Suspect]
     Active Substance: VANCOMYCIN HYDROCHLORIDE
     Indication: PREMEDICATION
     Dosage: AGAIN RECEIVED VANCOMYCIN AS A PREMEDICATION
  3. SIMVASTATIN. [Concomitant]
     Active Substance: SIMVASTATIN
     Dosage: HAD BEEN ON FOR SEVERAL YEARS
  4. VITAMIN D [VITAMIN D NOS] [Concomitant]
     Active Substance: VITAMIN D NOS
     Dosage: HAD BEEN ON FOR SEVERAL YEARS
  5. VANCOMYCIN HCL [Suspect]
     Active Substance: VANCOMYCIN HYDROCHLORIDE
     Indication: LOCALISED INFECTION
     Dosage: UNK
  6. FUROSEMIDE. [Concomitant]
     Active Substance: FUROSEMIDE
     Dosage: HAD BEEN ON FOR SEVERAL YEARS
  7. LISINOPRIL. [Concomitant]
     Active Substance: LISINOPRIL
     Dosage: HAD BEEN ON FOR SEVERAL YEARS

REACTIONS (3)
  - Odynophagia [Recovering/Resolving]
  - Linear IgA disease [Recovering/Resolving]
  - Drug hypersensitivity [Recovering/Resolving]
